FAERS Safety Report 4901085-6 (Version None)
Quarter: 2006Q1

REPORT INFORMATION
  Report Type: 
  Country: None (occurrence: None)
  Receive Date: 20060113
  Receipt Date: 20051129
  Transmission Date: 20060701
  Serious: No
  Sender: FDA-Public Use
  Company Number: 2005SP004183

PATIENT
  Age: 39 Year
  Sex: Male
  Weight: 77.1115 kg

DRUGS (3)
  1. LUNESTA [Suspect]
     Indication: INSOMNIA
     Dosage: 2 MG HS ORAL; 2 MG HS ORAL; 4 MG HS ORAL
     Route: 048
     Dates: start: 20051101, end: 20051101
  2. LUNESTA [Suspect]
     Indication: INSOMNIA
     Dosage: 2 MG HS ORAL; 2 MG HS ORAL; 4 MG HS ORAL
     Route: 048
     Dates: start: 20051101, end: 20051101
  3. LUNESTA [Suspect]
     Indication: INSOMNIA
     Dosage: 2 MG HS ORAL; 2 MG HS ORAL; 4 MG HS ORAL
     Route: 048
     Dates: start: 20051130

REACTIONS (7)
  - DISTURBANCE IN ATTENTION [None]
  - DRUG INEFFECTIVE [None]
  - DYSGEUSIA [None]
  - HYPOAESTHESIA [None]
  - INITIAL INSOMNIA [None]
  - PARAESTHESIA [None]
  - SOMNOLENCE [None]
